FAERS Safety Report 6449759-2 (Version None)
Quarter: 2009Q4

REPORT INFORMATION
  Report Type: 
  Country: None (occurrence: None)
  Receive Date: 20091120
  Receipt Date: 20081103
  Transmission Date: 20100525
  Serious: Yes (Hospitalization, Other)
  Sender: FDA-Public Use
  Company Number: US-AMGEN-QUU313661

PATIENT
  Sex: Female
  Weight: 56.3 kg

DRUGS (6)
  1. ENBREL [Suspect]
     Indication: RHEUMATOID ARTHRITIS
     Route: 058
     Dates: start: 20070925, end: 20071130
  2. METHOTREXATE [Concomitant]
     Dates: start: 20070321
  3. FOLIC ACID [Concomitant]
     Dates: start: 20070321
  4. ISONIAZID [Concomitant]
     Dates: start: 20070816
  5. ASPIRIN [Concomitant]
     Dates: end: 20070307
  6. UNSPECIFIED MEDICATION [Concomitant]

REACTIONS (4)
  - ALANINE AMINOTRANSFERASE INCREASED [None]
  - ASPARTATE AMINOTRANSFERASE INCREASED [None]
  - CONVULSION [None]
  - SIMPLE PARTIAL SEIZURES [None]
